FAERS Safety Report 25872817 (Version 1)
Quarter: 2025Q4

REPORT INFORMATION
  Report Type: Spontaneous
  Country: US (occurrence: US)
  Receive Date: 20251002
  Receipt Date: 20251002
  Transmission Date: 20260118
  Serious: No
  Sender: ELI LILLY AND COMPANY
  Company Number: US-ELI_LILLY_AND_COMPANY-US202509017840

PATIENT
  Age: 68 Year
  Sex: Female

DRUGS (1)
  1. ZEPBOUND [Suspect]
     Active Substance: TIRZEPATIDE
     Indication: Product used for unknown indication
     Dosage: 5 MG, UNKNOWN
     Route: 058

REACTIONS (7)
  - Dry eye [Unknown]
  - Sleep disorder [Unknown]
  - Asthenopia [Unknown]
  - Polydipsia [Unknown]
  - Abdominal discomfort [Unknown]
  - Dysgeusia [Unknown]
  - Constipation [Unknown]
